FAERS Safety Report 5762157-X (Version None)
Quarter: 2008Q2

REPORT INFORMATION
  Report Type: 
  Country: None (occurrence: None)
  Receive Date: 20080604
  Receipt Date: 20080526
  Transmission Date: 20081010
  Serious: Yes (Hospitalization)
  Sender: FDA-Public Use
  Company Number: CIP08000909

PATIENT
  Sex: Male

DRUGS (1)
  1. ACTONEL [Suspect]
     Dosage: ORAL
     Route: 048

REACTIONS (4)
  - OESOPHAGEAL ULCER [None]
  - PNEUMONIA STAPHYLOCOCCAL [None]
  - PROSTATE CANCER [None]
  - STAPHYLOCOCCAL BACTERAEMIA [None]
